FAERS Safety Report 5032527-6 (Version None)
Quarter: 2006Q2

REPORT INFORMATION
  Report Type: 
  Country: None (occurrence: None)
  Receive Date: 20060621
  Receipt Date: 20060621
  Transmission Date: 20061013
  Serious: Yes (Death)
  Sender: FDA-Public Use
  Company Number: None

PATIENT
  Sex: Male
  Weight: 98 kg

DRUGS (3)
  1. CYTARABINE [Suspect]
     Dosage: 1540 MG
  2. DAUNORUBICIN HCL [Suspect]
     Dosage: 288 MG
  3. MYLOTARG [Suspect]
     Dosage: 13 MG

REACTIONS (5)
  - ACUTE RESPIRATORY DISTRESS SYNDROME [None]
  - CEREBRAL HAEMORRHAGE [None]
  - HYPOXIA [None]
  - LUNG CONSOLIDATION [None]
  - PULMONARY HAEMORRHAGE [None]
